FAERS Safety Report 6200015-7 (Version None)
Quarter: 2009Q2

REPORT INFORMATION
  Report Type: 
  Country: None (occurrence: None)
  Receive Date: 20090522
  Receipt Date: 20090518
  Transmission Date: 20091009
  Serious: Yes (Hospitalization)
  Sender: FDA-Public Use
  Company Number: JP-MERCK-0905USA02414

PATIENT

DRUGS (3)
  1. COZAAR [Suspect]
     Route: 048
     Dates: start: 20090518, end: 20090518
  2. CONIEL [Concomitant]
     Route: 048
  3. ASPIRIN [Concomitant]
     Route: 048

REACTIONS (2)
  - ANURIA [None]
  - OVERDOSE [None]
